FAERS Safety Report 7714613-2 (Version None)
Quarter: 2011Q3

REPORT INFORMATION
  Report Type: 
  Country: None (occurrence: None)
  Receive Date: 20110822
  Receipt Date: 20110805
  Transmission Date: 20111222
  Serious: Yes (Life-Threatening, Hospitalization, Other)
  Sender: FDA-Public Use
  Company Number: 2011MA011393

PATIENT
  Age: 48 Year
  Sex: Male

DRUGS (1)
  1. CARBAMAZEPINE [Suspect]
     Indication: TAENIASIS

REACTIONS (33)
  - CARDIAC FAILURE [None]
  - POISONING [None]
  - NEUTROPHIL PERCENTAGE INCREASED [None]
  - PROTEIN TOTAL DECREASED [None]
  - BLOOD POTASSIUM DECREASED [None]
  - BLOOD URINE PRESENT [None]
  - SPECIFIC GRAVITY URINE INCREASED [None]
  - FIBRIN D DIMER INCREASED [None]
  - RESPIRATORY DEPRESSION [None]
  - PUPILLARY REFLEX IMPAIRED [None]
  - BILIRUBIN CONJUGATED INCREASED [None]
  - BLOOD FIBRINOGEN INCREASED [None]
  - WHITE BLOOD CELL COUNT INCREASED [None]
  - RED BLOOD CELL COUNT DECREASED [None]
  - BLOOD ALBUMIN DECREASED [None]
  - BLOOD BILIRUBIN UNCONJUGATED INCREASED [None]
  - LOSS OF CONSCIOUSNESS [None]
  - RALES [None]
  - ALANINE AMINOTRANSFERASE INCREASED [None]
  - URINE OUTPUT INCREASED [None]
  - PROTHROMBIN TIME PROLONGED [None]
  - OVERDOSE [None]
  - EXTENSOR PLANTAR RESPONSE [None]
  - BLOOD PH INCREASED [None]
  - BLOOD CHLORIDE INCREASED [None]
  - MULTI-ORGAN DISORDER [None]
  - GASTROINTESTINAL SOUNDS ABNORMAL [None]
  - ASPARTATE AMINOTRANSFERASE INCREASED [None]
  - BLOOD CREATININE INCREASED [None]
  - PO2 DECREASED [None]
  - BLOOD GLUCOSE INCREASED [None]
  - PROTEIN URINE PRESENT [None]
  - LABORATORY TEST ABNORMAL [None]
